FAERS Safety Report 9339221 (Version 2)
Quarter: 2013Q2

REPORT INFORMATION
  Report Type: Spontaneous
  Country: FR (occurrence: FR)
  Receive Date: 20130610
  Receipt Date: 20130611
  Transmission Date: 20140414
  Serious: Yes (Death, Other)
  Sender: FDA-Public Use
  Company Number: FR-MERCK-1305FRA017860

PATIENT
  Age: 69 Year
  Sex: Female

DRUGS (7)
  1. TEMODAL [Suspect]
     Dosage: 125 MG, CYCLICAL
     Route: 048
     Dates: start: 20130322, end: 201304
  2. BACTRIM [Suspect]
     Dosage: 1 DF, QOD
     Route: 048
     Dates: start: 20130322, end: 20130506
  3. KEPPRA [Suspect]
     Dosage: 500 MG, BID
     Route: 048
     Dates: start: 2013, end: 20130506
  4. DOLIPRANE [Concomitant]
     Indication: PAIN
     Dosage: 1 G, PRN
     Route: 048
     Dates: start: 2013
  5. CONTRAMAL [Concomitant]
     Dosage: 50 MG, QD
     Route: 048
  6. DEROXAT [Concomitant]
     Dosage: 20 MG, QAM
     Route: 048
  7. XANAX [Concomitant]
     Indication: ANXIETY
     Dosage: 0.25 MG, PRN
     Route: 048

REACTIONS (1)
  - Pancytopenia [Fatal]
